FAERS Safety Report 7044055-7 (Version None)
Quarter: 2010Q4

REPORT INFORMATION
  Report Type: 
  Country: None (occurrence: None)
  Receive Date: 20101013
  Receipt Date: 20101007
  Transmission Date: 20110411
  Serious: Yes (Disabling)
  Sender: FDA-Public Use
  Company Number: JP-PFIZER INC-2010121135

PATIENT
  Age: 73 Year
  Sex: Female
  Weight: 42 kg

DRUGS (14)
  1. ZYVOX [Suspect]
     Indication: URINARY TRACT INFECTION
     Dosage: 1200MG DAILY
     Route: 041
     Dates: start: 20100817, end: 20100823
  2. CEFOZOPRAN [Concomitant]
     Indication: URINARY TRACT INFECTION
     Dosage: UNK
     Route: 041
  3. SERMION [Concomitant]
     Indication: CEREBROVASCULAR DISORDER
     Dosage: 5 MG, 3X/DAY
     Route: 048
  4. GASMOTIN [Concomitant]
     Indication: VOMITING
     Dosage: 5 MG, 3X/DAY
     Route: 048
  5. MAGNESIUM OXIDE [Concomitant]
     Indication: CONSTIPATION
     Dosage: 330 MG, 3X/DAY
     Route: 048
  6. TAKEPRON [Concomitant]
     Indication: REFLUX OESOPHAGITIS
     Dosage: 15 MG, 1X/DAY
     Route: 048
  7. ARICEPT [Concomitant]
     Indication: DEMENTIA ALZHEIMER'S TYPE
     Dosage: 5 MG, 1X/DAY
     Route: 048
  8. ALENDRONATE SODIUM [Concomitant]
     Indication: OSTEOPOROSIS
     Dosage: 35 MG, WEEKLY
     Route: 048
  9. LASIX [Concomitant]
     Indication: URINE OUTPUT DECREASED
     Dosage: 20 MG, 1X/DAY
     Route: 048
  10. BUFFERIN [Concomitant]
     Indication: CEREBRAL INFARCTION
     Dosage: 81 MG, 1X/DAY
     Route: 048
  11. FERROMIA [Concomitant]
     Indication: MINERAL SUPPLEMENTATION
     Dosage: 50 MG, 2X/DAY
     Route: 048
  12. DOGMATYL [Concomitant]
     Indication: DEPRESSION
     Dosage: 25 MG, 1X/DAY
     Route: 048
  13. DIAZEPAM [Concomitant]
     Indication: DEPRESSION
     Dosage: 2.5 MG, 1X/DAY
     Route: 048
  14. TOLEDOMIN [Concomitant]
     Indication: DEPRESSION
     Dosage: 15 MG, 1X/DAY
     Route: 048

REACTIONS (1)
  - RENAL IMPAIRMENT [None]
